FAERS Safety Report 23650618 (Version 1)
Quarter: 2024Q1

REPORT INFORMATION
  Report Type: Spontaneous
  Country: US (occurrence: None)
  Receive Date: 20240320
  Receipt Date: 20240320
  Transmission Date: 20240410
  Serious: Yes (Other)
  Sender: FDA-Public Use
  Company Number: US-ROCHE-3404301

PATIENT
  Age: 84 Year

DRUGS (2)
  1. VABYSMO [Suspect]
     Active Substance: FARICIMAB\FARICIMAB-SVOA
     Indication: Product used for unknown indication
     Route: 065
  2. ATROPINE [Concomitant]
     Active Substance: ATROPINE\ATROPINE SULFATE

REACTIONS (1)
  - Non-infectious endophthalmitis [Recovering/Resolving]
